FAERS Safety Report 12727075 (Version 4)
Quarter: 2020Q2

REPORT INFORMATION
  Report Type: Spontaneous
  Country: JP (occurrence: JP)
  Receive Date: 20160909
  Receipt Date: 20200605
  Transmission Date: 20200713
  Serious: Yes (Other)
  Sender: FDA-Public Use
  Company Number: JP-ROCHE-1827578

PATIENT
  Age: 69 Year
  Sex: Male

DRUGS (15)
  1. LUCENTIS [Suspect]
     Active Substance: RANIBIZUMAB
     Route: 031
     Dates: start: 20160613
  2. LUCENTIS [Suspect]
     Active Substance: RANIBIZUMAB
     Route: 031
     Dates: start: 20171102
  3. LUCENTIS [Suspect]
     Active Substance: RANIBIZUMAB
     Route: 031
     Dates: start: 20180712
  4. LUCENTIS [Suspect]
     Active Substance: RANIBIZUMAB
     Route: 031
  5. LUCENTIS [Suspect]
     Active Substance: RANIBIZUMAB
     Route: 031
     Dates: start: 20170810
  6. LUCENTIS [Suspect]
     Active Substance: RANIBIZUMAB
     Route: 031
  7. LUCENTIS [Suspect]
     Active Substance: RANIBIZUMAB
     Route: 031
     Dates: start: 20190808
  8. LUCENTIS [Suspect]
     Active Substance: RANIBIZUMAB
     Route: 031
     Dates: start: 20160512
  9. LUCENTIS [Suspect]
     Active Substance: RANIBIZUMAB
     Route: 031
  10. LUCENTIS [Suspect]
     Active Substance: RANIBIZUMAB
     Route: 031
     Dates: start: 20171002
  11. LUCENTIS [Suspect]
     Active Substance: RANIBIZUMAB
     Route: 031
     Dates: start: 20180111
  12. LUCENTIS [Suspect]
     Active Substance: RANIBIZUMAB
     Route: 031
     Dates: start: 20180308
  13. LUCENTIS [Suspect]
     Active Substance: RANIBIZUMAB
     Route: 031
     Dates: start: 20180510
  14. LUCENTIS [Suspect]
     Active Substance: RANIBIZUMAB
     Indication: RETINAL VEIN OCCLUSION
     Dosage: UNK
     Route: 031
  15. LUCENTIS [Suspect]
     Active Substance: RANIBIZUMAB
     Route: 031
     Dates: start: 20170622

REACTIONS (9)
  - Neovascularisation [Unknown]
  - Hypoperfusion [Unknown]
  - Retinal exudates [Unknown]
  - Disease progression [Unknown]
  - Ocular vascular disorder [Unknown]
  - Retinal vein occlusion [Unknown]
  - Vitreous haemorrhage [Unknown]
  - Visual acuity reduced [Unknown]
  - Retinal degeneration [Unknown]

NARRATIVE: CASE EVENT DATE: 20170810
